FAERS Safety Report 9494433 (Version 1)
Quarter: 2013Q3

REPORT INFORMATION
  Report Type: Spontaneous
  Country: GB (occurrence: GB)
  Receive Date: 20130903
  Receipt Date: 20130903
  Transmission Date: 20140515
  Serious: Yes (Other)
  Sender: FDA-Public Use
  Company Number: PHHY2013GB091331

PATIENT
  Age: 54 Year
  Sex: Female

DRUGS (2)
  1. CO-TRIMOXAZOLE [Suspect]
     Indication: ORAL CANDIDIASIS
     Dosage: 120 MG/KG, UNK
     Route: 042
  2. FLUCONAZOLE [Concomitant]
     Indication: ORAL CANDIDIASIS

REACTIONS (1)
  - Bone marrow failure [Recovered/Resolved]
